FAERS Safety Report 4519393-X (Version None)
Quarter: 2004Q4

REPORT INFORMATION
  Report Type: 
  Country: None (occurrence: None)
  Receive Date: 20041206
  Receipt Date: 20041122
  Transmission Date: 20050328
  Serious: Yes (Other)
  Sender: FDA-Public Use
  Company Number: 2004096282

PATIENT
  Weight: 79.3795 kg

DRUGS (2)
  1. EMETROL (GLUCOSE, FRUCTOSE, PHOSPHORIC ACID) [Suspect]
     Indication: NAUSEA
     Dosage: TABLESPOON ONCE DAILY PRN, ORAL
     Route: 048
  2. LETROZOLE (LETROZOLE) [Concomitant]

REACTIONS (1)
  - BREAST CANCER FEMALE [None]
